FAERS Safety Report 8388368-5 (Version None)
Quarter: 2012Q2

REPORT INFORMATION
  Report Type: 
  Country: None (occurrence: None)
  Receive Date: 20120525
  Receipt Date: 20120523
  Transmission Date: 20120825
  Serious: Yes (Hospitalization, Other)
  Sender: FDA-Public Use
  Company Number: US-PFIZER INC-2012073419

PATIENT
  Sex: Male
  Weight: 97.506 kg

DRUGS (13)
  1. NEXIUM [Suspect]
     Indication: DYSPEPSIA
     Dosage: 40 MG, 1X/DAY
     Route: 048
     Dates: start: 20080101
  2. ACCURETIC [Suspect]
     Indication: HYPERTENSION
     Dosage: 20/12.5MG,DAILY
     Route: 048
     Dates: start: 20080101
  3. NEXIUM [Suspect]
     Indication: GASTROOESOPHAGEAL REFLUX DISEASE
  4. CHONDROITIN/GLUCOSAMINE [Concomitant]
     Dosage: UNK
  5. ACETYLSALICYLIC ACID [Concomitant]
     Dosage: 81 MG, UNK
  6. VITAMIN C [Concomitant]
     Dosage: UNK
  7. LIPITOR [Suspect]
     Indication: BLOOD CHOLESTEROL INCREASED
     Dosage: 20 MG, 1X/DAY
     Route: 048
     Dates: start: 20080101
  8. LIPITOR [Suspect]
     Indication: HYPERLIPIDAEMIA
  9. GARLIC [Concomitant]
     Dosage: UNK
  10. VITAMIN E [Concomitant]
     Dosage: UNK
  11. FISH OIL [Concomitant]
     Dosage: UNK
  12. TIAZAC [Concomitant]
     Indication: HYPERTENSION
     Dosage: 240 MG, DAILY
  13. VITAMIN D [Concomitant]
     Dosage: UNK

REACTIONS (8)
  - GASTROINTESTINAL STROMAL TUMOUR [None]
  - BLADDER NEOPLASM [None]
  - PARAESTHESIA [None]
  - DYSPEPSIA [None]
  - ANAEMIA [None]
  - HYPERCHLORHYDRIA [None]
  - CHEST DISCOMFORT [None]
  - HAEMORRHAGE [None]
